FAERS Safety Report 7235682-2 (Version None)
Quarter: 2011Q1

REPORT INFORMATION
  Report Type: 
  Country: None (occurrence: None)
  Receive Date: 20110110
  Receipt Date: 20101229
  Transmission Date: 20110831
  Serious: Yes (Life-Threatening, Hospitalization, Other)
  Sender: FDA-Public Use
  Company Number: 2010SP054770

PATIENT
  Age: 49 Year
  Sex: Female

DRUGS (4)
  1. AMOBAN (ZOPICLONE) [Suspect]
     Indication: PRODUCT USED FOR UNKNOWN INDICATION
     Dosage: (10 MG; QD; PO) (520 MG; ONCE; PO)
     Route: 048
     Dates: start: 20101007, end: 20101007
  2. REFLEX (MIRTAZAPINE /01293201/) [Suspect]
     Indication: PRODUCT USED FOR UNKNOWN INDICATION
     Dosage: (30 MG; QD; PO) (750 MG; ONCE; PO)
     Route: 048
     Dates: start: 20101007, end: 20101007
  3. TETRAMIDE (MIANSERIN HYDROCHLORIDE /00390602/) [Suspect]
     Indication: PRODUCT USED FOR UNKNOWN INDICATION
     Dosage: (40 MG; QD; PO) (1770 MG; ONCE; PO)
     Route: 048
     Dates: start: 20101007, end: 20101007
  4. BENZALIN (NITRAZEPAM) [Suspect]
     Indication: PRODUCT USED FOR UNKNOWN INDICATION
     Dosage: (5 MG; QD; PO) (280 MG; ONCE; PO)
     Route: 048
     Dates: start: 20101007, end: 20101007

REACTIONS (5)
  - TREATMENT NONCOMPLIANCE [None]
  - COMA [None]
  - VOMITING [None]
  - SUICIDE ATTEMPT [None]
  - INCORRECT DOSE ADMINISTERED [None]
